FAERS Safety Report 14420044 (Version 2)
Quarter: 2018Q2

REPORT INFORMATION
  Report Type: Not Available
  Country: US (occurrence: US)
  Receive Date: 20180122
  Receipt Date: 20180420
  Transmission Date: 20180711
  Serious: Yes (Other)
  Sender: FDA-Public Use
  Company Number: US-NEUROCRINE BIOSCIENCES INC.-2018NBI00111

PATIENT
  Age: 50 Year
  Sex: Female

DRUGS (7)
  1. INGREZZA [Suspect]
     Active Substance: VALBENAZINE
     Indication: TARDIVE DYSKINESIA
     Route: 048
     Dates: start: 20171218, end: 201712
  2. INGREZZA [Suspect]
     Active Substance: VALBENAZINE
     Route: 048
     Dates: start: 201802
  3. INGREZZA [Suspect]
     Active Substance: VALBENAZINE
     Route: 048
     Dates: start: 201712, end: 201802
  4. LYRICA [Concomitant]
     Active Substance: PREGABALIN
     Dosage: AT NIGHT
  5. MEDICAL MARIJUANA [Concomitant]
     Active Substance: CANNABIS SATIVA SUBSP. INDICA TOP
  6. LORAZEPAM. [Concomitant]
     Active Substance: LORAZEPAM
  7. ESTRADIOL. [Concomitant]
     Active Substance: ESTRADIOL

REACTIONS (7)
  - Vascular compression [Not Recovered/Not Resolved]
  - Sedation [Recovered/Resolved]
  - Fatigue [Unknown]
  - Balance disorder [Not Recovered/Not Resolved]
  - Surgery [Unknown]
  - Mood altered [Unknown]
  - Nausea [Not Recovered/Not Resolved]

NARRATIVE: CASE EVENT DATE: 2017
